FAERS Safety Report 5331476-3 (Version None)
Quarter: 2007Q2

REPORT INFORMATION
  Report Type: 
  Country: None (occurrence: None)
  Receive Date: 20070522
  Receipt Date: 20070510
  Transmission Date: 20071010
  Serious: Yes (Hospitalization)
  Sender: FDA-Public Use
  Company Number: US-PFIZER INC-2005153927

PATIENT
  Sex: Female
  Weight: 83.9 kg

DRUGS (9)
  1. XALATAN [Suspect]
     Indication: GLAUCOMA
     Route: 047
  2. LIPITOR [Suspect]
     Indication: ILL-DEFINED DISORDER
     Dosage: TEXT:UNKNOWN-FREQ:DAILY
     Route: 065
     Dates: start: 20040101, end: 20040101
  3. NORVASC [Suspect]
     Indication: HYPERTENSION
     Route: 065
     Dates: start: 20040101, end: 20050101
  4. AVANDIA [Suspect]
     Indication: DIABETES MELLITUS
     Dosage: TEXT:UNKNOWN-FREQ:UNKNOWN
     Route: 065
     Dates: start: 20050101, end: 20050101
  5. AVALIDE [Suspect]
     Indication: HYPERTENSION
     Route: 065
  6. SYNTHROID [Concomitant]
     Route: 065
  7. CENTRUM SILVER [Concomitant]
     Route: 065
  8. GARLIC [Concomitant]
     Route: 065
  9. FISH OIL [Concomitant]
     Route: 065

REACTIONS (6)
  - BLISTER [None]
  - BLOOD CHOLESTEROL [None]
  - CARDIAC PACEMAKER INSERTION [None]
  - DRUG DOSE OMISSION [None]
  - LACRIMATION INCREASED [None]
  - PRURITUS [None]
